FAERS Safety Report 17293120 (Version 1)
Quarter: 2020Q1

REPORT INFORMATION
  Report Type: Spontaneous
  Country: US (occurrence: US)
  Receive Date: 20200117
  Receipt Date: 20200117
  Transmission Date: 20200409
  Serious: Yes (Hospitalization, Other)
  Sender: FDA-Public Use
  Company Number: None

PATIENT
  Age: 23 Year
  Sex: Male
  Weight: 56.25 kg

DRUGS (4)
  1. EMERALD KRATOM POWDER [Suspect]
     Active Substance: HERBALS\MITRAGYNINE
     Indication: ANXIETY
     Route: 048
     Dates: start: 20180815, end: 20200113
  2. CLONAZEPAM. [Concomitant]
     Active Substance: CLONAZEPAM
  3. BACOFIN [Concomitant]
  4. VITAMIN B12 [Concomitant]
     Active Substance: CYANOCOBALAMIN

REACTIONS (3)
  - Drug withdrawal syndrome [None]
  - Product complaint [None]
  - Dependence [None]

NARRATIVE: CASE EVENT DATE: 20200113
